FAERS Safety Report 11351539 (Version 1)
Quarter: 2015Q3

REPORT INFORMATION
  Report Type: Spontaneous
  Country: US (occurrence: US)
  Receive Date: 20150807
  Receipt Date: 20150807
  Transmission Date: 20151125
  Serious: No
  Sender: FDA-Public Use
  Company Number: US-JNJFOC-20150424755

PATIENT
  Age: 58 Year
  Sex: Female
  Weight: 57.61 kg

DRUGS (5)
  1. WOMENS ROGAINE UNSCENTED [Suspect]
     Active Substance: MINOXIDIL
     Route: 061
  2. WOMENS ROGAINE UNSCENTED [Suspect]
     Active Substance: MINOXIDIL
     Indication: ALOPECIA
     Dosage: ABOUT 5 MONTHS, AMOUNT VARIED
     Route: 061
     Dates: start: 201410
  3. BIOTIN [Concomitant]
     Active Substance: BIOTIN
     Indication: HAIR GROWTH ABNORMAL
     Route: 065
  4. VITAMIN B12 [Concomitant]
     Active Substance: CYANOCOBALAMIN
     Indication: VITAMIN B12 DEFICIENCY
     Dosage: 1 SHOT A MONTH
     Route: 065
  5. LYSINE [Concomitant]
     Active Substance: LYSINE
     Indication: HAIR GROWTH ABNORMAL
     Dosage: 1 PILL A DAY
     Route: 065

REACTIONS (4)
  - Wrong technique in product usage process [Not Recovered/Not Resolved]
  - Medication error [Not Recovered/Not Resolved]
  - Alopecia [Not Recovered/Not Resolved]
  - Drug ineffective [Unknown]
